APPROVED DRUG PRODUCT: RUFINAMIDE
Active Ingredient: RUFINAMIDE
Strength: 400MG
Dosage Form/Route: TABLET;ORAL
Application: A216688 | Product #002 | TE Code: AB
Applicant: MICRO LABS LTD
Approved: May 15, 2023 | RLD: No | RS: No | Type: RX